FAERS Safety Report 7930892-0 (Version None)
Quarter: 2011Q4

REPORT INFORMATION
  Report Type: 
  Country: None (occurrence: None)
  Receive Date: 20111121
  Receipt Date: 20110810
  Transmission Date: 20120403
  Serious: Yes (Other)
  Sender: FDA-Public Use
  Company Number: PHFR2011GB006608

PATIENT
  Age: 60 Year
  Sex: Female
  Weight: 68 kg

DRUGS (6)
  1. CETIRIZINE HCL [Concomitant]
     Indication: URTICARIA CHRONIC
     Dosage: 10 MG, TID
     Route: 048
  2. ZADITEN [Suspect]
     Indication: URTICARIA CHRONIC
     Dosage: 1 DF, BID
     Route: 048
     Dates: start: 20110716, end: 20110720
  3. ZANTAC [Concomitant]
     Dosage: 150 MG, BID
     Route: 048
  4. E45 ITCH RELIEF [Concomitant]
     Indication: URTICARIA CHRONIC
     Route: 061
  5. NITRAZEPAM [Concomitant]
     Dosage: 5 MG, QD
     Route: 048
  6. ACETAMINOPHEN [Concomitant]
     Indication: URTICARIA CHRONIC
     Dosage: 1000 MG, PRN
     Route: 048

REACTIONS (4)
  - HOT FLUSH [None]
  - CONTUSION [None]
  - BLISTER [None]
  - PRURITUS [None]
